FAERS Safety Report 12746471 (Version 1)
Quarter: 2016Q3

REPORT INFORMATION
  Report Type: Spontaneous
  Country: PL (occurrence: PL)
  Receive Date: 20160915
  Receipt Date: 20160915
  Transmission Date: 20161109
  Serious: Yes (Other)
  Sender: FDA-Public Use
  Company Number: PL-PFIZER INC-2016428530

PATIENT
  Age: 49 Year
  Sex: Female
  Weight: 80 kg

DRUGS (4)
  1. NANOGY [Suspect]
     Active Substance: HUMAN IMMUNOGLOBULIN G
     Indication: POLYNEUROPATHY
     Dosage: 30 G, 1X/DAY
     Route: 042
     Dates: start: 20160107, end: 20160111
  2. TERTENSIF SR [Concomitant]
     Route: 048
     Dates: start: 20160107
  3. BISOCARD [Concomitant]
     Active Substance: BISOPROLOL
     Route: 048
     Dates: start: 20160107
  4. GABAPENTIN. [Suspect]
     Active Substance: GABAPENTIN
     Indication: POLYNEUROPATHY
     Dosage: 900 MG, DAILY
     Route: 048
     Dates: start: 20160107, end: 20160118

REACTIONS (2)
  - Rash erythematous [Unknown]
  - Rash pruritic [Unknown]

NARRATIVE: CASE EVENT DATE: 20160118
